FAERS Safety Report 10079548 (Version 2)
Quarter: 2015Q1

REPORT INFORMATION
  Report Type: Spontaneous
  Country: US (occurrence: US)
  Receive Date: 20140415
  Receipt Date: 20150120
  Transmission Date: 20150720
  Serious: Yes (Other)
  Sender: FDA-Public Use
  Company Number: US-BAYER-2014-054949

PATIENT
  Sex: Female
  Weight: 75 kg

DRUGS (1)
  1. YAZ [Suspect]
     Active Substance: DROSPIRENONE\ETHINYL ESTRADIOL
     Dosage: UNK
     Route: 048
     Dates: start: 2006, end: 2007

REACTIONS (5)
  - Pulmonary embolism [None]
  - Deep vein thrombosis [None]
  - Pain [None]
  - Injury [None]
  - Thrombosis [None]
